FAERS Safety Report 6710693-1 (Version None)
Quarter: 2010Q2

REPORT INFORMATION
  Report Type: 
  Country: None (occurrence: None)
  Receive Date: 20100504
  Receipt Date: 20100504
  Transmission Date: 20101027
  Serious: Yes (Other)
  Sender: FDA-Public Use
  Company Number: None

PATIENT
  Age: 6 Year
  Sex: Male
  Weight: 21.7727 kg

DRUGS (1)
  1. CHILDREN'S MOTRIN [Suspect]
     Indication: ARTHRALGIA
     Dosage: 2TSP ONE A DAY PO
     Route: 048
     Dates: start: 20100328, end: 20100329

REACTIONS (2)
  - ERYTHEMA [None]
  - HEAT RASH [None]
